FAERS Safety Report 22613715 (Version 1)
Quarter: 2023Q2

REPORT INFORMATION
  Report Type: Spontaneous
  Country: US (occurrence: US)
  Receive Date: 20230619
  Receipt Date: 20230619
  Transmission Date: 20230722
  Serious: No
  Sender: FDA-Public Use
  Company Number: US-JNJFOC-20230635875

PATIENT
  Age: 48 Year
  Sex: Female

DRUGS (1)
  1. SPRAVATO [Suspect]
     Active Substance: ESKETAMINE
     Indication: Depression
     Dosage: PATIENT TOOK SPRAVATO 5 TIMES, 4 OF WHICH WERE AT THE 56MG DOSE, THE 5TH TIME AT THE 84MG DOSE
     Route: 045

REACTIONS (4)
  - Panic disorder [Recovered/Resolved]
  - Derealisation [Recovered/Resolved]
  - Anxiety [Recovered/Resolved]
  - Feeling abnormal [Recovered/Resolved]
